FAERS Safety Report 18584689 (Version 2)
Quarter: 2025Q1

REPORT INFORMATION
  Report Type: Spontaneous
  Country: CA (occurrence: CA)
  Receive Date: 20201207
  Receipt Date: 20250210
  Transmission Date: 20250408
  Serious: Yes (Other)
  Sender: SANOFI AVENTIS
  Company Number: CA-SA-2020SA342086

PATIENT
  Age: 44 Year
  Sex: Male

DRUGS (8)
  1. LEFLUNOMIDE [Suspect]
     Active Substance: LEFLUNOMIDE
     Indication: Product used for unknown indication
     Route: 048
     Dates: start: 20140602, end: 20160627
  2. DULOXETINE HYDROCHLORIDE [Suspect]
     Active Substance: DULOXETINE HYDROCHLORIDE
     Indication: Product used for unknown indication
     Route: 065
  3. DICLOFENAC [Suspect]
     Active Substance: DICLOFENAC
     Indication: Product used for unknown indication
     Dosage: 2 DF, QD
     Route: 048
  4. DICLOFENAC [Suspect]
     Active Substance: DICLOFENAC
     Dosage: UNK, BID
     Dates: start: 20140424, end: 201409
  5. PREGABALIN [Suspect]
     Active Substance: PREGABALIN
     Indication: Product used for unknown indication
     Route: 065
  6. METHOTREXATE [Suspect]
     Active Substance: METHOTREXATE
     Indication: Product used for unknown indication
     Dosage: 20 MG, QW
     Route: 048
     Dates: start: 201611
  7. COSENTYX [Suspect]
     Active Substance: SECUKINUMAB
     Indication: Psoriatic arthropathy
     Dosage: 150 MG, QM
     Route: 058
     Dates: start: 20180805, end: 20190108
  8. NAPROXEN [Concomitant]
     Active Substance: NAPROXEN
     Indication: Product used for unknown indication
     Route: 065
     Dates: start: 201409, end: 20141219

REACTIONS (11)
  - Ankylosing spondylitis [Unknown]
  - Back pain [Unknown]
  - Feeling abnormal [Unknown]
  - Thyroid disorder [Unknown]
  - Intervertebral disc degeneration [Unknown]
  - Undifferentiated connective tissue disease [Recovering/Resolving]
  - Musculoskeletal pain [Unknown]
  - Arthropathy [Unknown]
  - Eczema [Unknown]
  - Rash [Unknown]
  - Psoriasis [Not Recovered/Not Resolved]
